FAERS Safety Report 4487662-8 (Version None)
Quarter: 2004Q4

REPORT INFORMATION
  Report Type: 
  Country: None (occurrence: None)
  Receive Date: 20041027
  Receipt Date: 20041027
  Transmission Date: 20050328
  Serious: Yes (Hospitalization)
  Sender: FDA-Public Use
  Company Number: None

PATIENT
  Age: 64 Year
  Sex: Female

DRUGS (1)
  1. MORPHINE [Suspect]
     Indication: ARTHRALGIA
     Route: 065

REACTIONS (5)
  - ARTHRALGIA [None]
  - CONFUSIONAL STATE [None]
  - DELIRIUM [None]
  - MENTAL STATUS CHANGES [None]
  - RENAL FAILURE ACUTE [None]
